FAERS Safety Report 8284157 (Version 3)
Quarter: 2013Q1

REPORT INFORMATION
  Report Type: Spontaneous
  Country: GB (occurrence: None)
  Receive Date: 20111206
  Receipt Date: 20130329
  Transmission Date: 20140127
  Serious: Yes (Hospitalization)
  Sender: FDA-Public Use
  Company Number: AUR-APL-2011-06012

PATIENT
  Age: 89 Year
  Sex: Female

DRUGS (2)
  1. FLUOXETINE HYDROCHLORIDE [Suspect]
     Indication: PRODUCT USED FOR UNKNOWN INDICATION
     Dosage: STOPPED?
     Route: 048
  2. CLARITHROMYCIN [Suspect]
     Indication: RESPIRATORY TRACT INFECTION
     Dosage: STOPPED?
     Route: 048

REACTIONS (8)
  - Serotonin syndrome [None]
  - Respiratory tract infection [None]
  - Atrial fibrillation [None]
  - Urinary tract infection [None]
  - Disease recurrence [None]
  - Toxicity to various agents [None]
  - No therapeutic response [None]
  - Inhibitory drug interaction [None]
